FAERS Safety Report 10465692 (Version 1)
Quarter: 2014Q3

REPORT INFORMATION
  Report Type: Spontaneous
  Country: US (occurrence: US)
  Receive Date: 20140919
  Receipt Date: 20140919
  Transmission Date: 20150326
  Serious: Yes (Hospitalization)
  Sender: FDA-Public Use
  Company Number: US-B.I. PHARMACEUTICALS,INC./RIDGEFIELD-2014-BI-43920BP

PATIENT
  Age: 63 Year
  Sex: Female

DRUGS (2)
  1. PRADAXA [Suspect]
     Active Substance: DABIGATRAN ETEXILATE MESYLATE
     Indication: ATRIAL FIBRILLATION
     Dosage: 300 MG
     Route: 065
     Dates: start: 201309, end: 20131128
  2. ASPIRIN. [Concomitant]
     Active Substance: ASPIRIN
     Indication: PRODUCT USED FOR UNKNOWN INDICATION
     Route: 065

REACTIONS (9)
  - Diverticulum [Not Recovered/Not Resolved]
  - Cardiac failure congestive [Unknown]
  - Oedema [Not Recovered/Not Resolved]
  - Renal failure chronic [Not Recovered/Not Resolved]
  - Urinary tract infection [Unknown]
  - Renal failure acute [Not Recovered/Not Resolved]
  - Acute myocardial infarction [Unknown]
  - Haemorrhage [Not Recovered/Not Resolved]
  - Renal artery stenosis [Unknown]

NARRATIVE: CASE EVENT DATE: 2013
